FAERS Safety Report 9838862 (Version 1)
Quarter: 2014Q1

REPORT INFORMATION
  Report Type: Spontaneous
  Country: US (occurrence: US)
  Receive Date: 20140123
  Receipt Date: 20140123
  Transmission Date: 20141002
  Serious: Yes (Death, Hospitalization)
  Sender: FDA-Public Use
  Company Number: US-B.I. PHARMACEUTICALS,INC./RIDGEFIELD-2014-BI-02717BP

PATIENT
  Sex: Female
  Weight: 48.53 kg

DRUGS (13)
  1. PRADAXA [Suspect]
     Indication: ATRIAL FIBRILLATION
     Dates: start: 20110916, end: 20111117
  2. GLIPIZIDE [Concomitant]
     Dosage: 10 MG
  3. METFORMIN [Concomitant]
     Dosage: 850 MG
  4. ACTOS [Concomitant]
  5. LISINOPRIL [Concomitant]
     Dosage: 10 MG
  6. DIGOXIN [Concomitant]
  7. PRAVACHOL [Concomitant]
     Dosage: 80 MG
  8. COREG [Concomitant]
     Dosage: 12.5 MG
  9. PANTOPRAZOLE [Concomitant]
  10. METOPROLOL [Concomitant]
  11. PEPCID [Concomitant]
  12. IRON [Concomitant]
  13. LASIX [Concomitant]
     Dosage: 40 MG

REACTIONS (8)
  - Septic shock [Fatal]
  - Intestinal ischaemia [Fatal]
  - Gastrointestinal haemorrhage [Unknown]
  - Haemorrhagic anaemia [Unknown]
  - Coagulopathy [Unknown]
  - Acute myocardial infarction [Unknown]
  - Renal failure acute [Unknown]
  - Cardiac failure congestive [Unknown]
